FAERS Safety Report 6539987-X (Version None)
Quarter: 2010Q1

REPORT INFORMATION
  Report Type: 
  Country: None (occurrence: None)
  Receive Date: 20100115
  Receipt Date: 20100106
  Transmission Date: 20100710
  Serious: Yes (Other)
  Sender: FDA-Public Use
  Company Number: PHHY2010MX01698

PATIENT
  Sex: Female

DRUGS (2)
  1. ACLASTA [Suspect]
     Indication: OSTEOPOROSIS
     Dosage: 5 MG/100 ML
     Route: 042
     Dates: start: 20080130
  2. ACLASTA [Suspect]
     Dosage: UNK
     Route: 042
     Dates: start: 20090301

REACTIONS (5)
  - DISLOCATION OF VERTEBRA [None]
  - NERVE COMPRESSION [None]
  - NEURALGIA [None]
  - PAIN IN EXTREMITY [None]
  - VERTIGO [None]
